FAERS Safety Report 25681552 (Version 1)
Quarter: 2025Q3

REPORT INFORMATION
  Report Type: Spontaneous
  Country: CN (occurrence: CN)
  Receive Date: 20250814
  Receipt Date: 20250814
  Transmission Date: 20251020
  Serious: Yes (Other)
  Sender: RANBAXY
  Company Number: CN-SUN PHARMACEUTICAL INDUSTRIES INC-2025R1-522550

PATIENT
  Age: 13 Year

DRUGS (4)
  1. PREDNISONE [Suspect]
     Active Substance: PREDNISONE
     Indication: Facioscapulohumeral muscular dystrophy
     Dosage: 35 MILLIGRAM, DAILY
     Route: 065
  2. PREDNISONE [Suspect]
     Active Substance: PREDNISONE
     Indication: Becker^s muscular dystrophy
     Dosage: 30 MILLIGRAM, DAILY
     Route: 065
  3. CALCIUM CARBONATE\CHOLECALCIFEROL [Concomitant]
     Active Substance: CALCIUM CARBONATE\CHOLECALCIFEROL
     Indication: Prophylaxis
     Dosage: UNK UNK, QD, ONE TABLET PER DOSE
     Route: 065
  4. aluminum magnesium carbonate [Concomitant]
     Indication: Prophylaxis
     Dosage: UNK, TID, ONE TABLET PER DOSE
     Route: 065

REACTIONS (3)
  - Hypertension [Recovering/Resolving]
  - Tricuspid valve incompetence [Recovering/Resolving]
  - Obesity [Recovering/Resolving]
